FAERS Safety Report 5232119-X (Version None)
Quarter: 2007Q1

REPORT INFORMATION
  Report Type: 
  Country: None (occurrence: None)
  Receive Date: 20061201
  Receipt Date: 20061025
  Transmission Date: 20070707
  Serious: No
  Sender: FDA-Public Use
  Company Number: US200608006829

PATIENT
  Age: 60 Year
  Sex: Female

DRUGS (5)
  1. CYMBALTA [Suspect]
     Dosage: SEE IMAGE
     Dates: start: 20060320, end: 20060401
  2. CYMBALTA [Suspect]
     Dosage: SEE IMAGE
     Dates: start: 20060401, end: 20060601
  3. CYMBALTA [Suspect]
     Dosage: SEE IMAGE
     Dates: start: 20060601, end: 20060802
  4. CYMBALTA [Suspect]
     Dosage: SEE IMAGE
     Dates: start: 20060801, end: 20060913
  5. EFFEXOR [Concomitant]

REACTIONS (1)
  - MACULAR HOLE [None]
